FAERS Safety Report 13026354 (Version 1)
Quarter: 2016Q4

REPORT INFORMATION
  Report Type: Spontaneous
  Country: CN (occurrence: CN)
  Receive Date: 20161214
  Receipt Date: 20161214
  Transmission Date: 20170207
  Serious: Yes (Other)
  Sender: FDA-Public Use
  Company Number: CN-OTSUKA-2016_029045

PATIENT

DRUGS (8)
  1. ARA-C [Suspect]
     Active Substance: CYTARABINE
     Indication: ACUTE MYELOID LEUKAEMIA
  2. G-CSF [Suspect]
     Active Substance: GRANULOCYTE COLONY-STIMULATING FACTOR NOS
     Indication: ACUTE MYELOID LEUKAEMIA
  3. HOMOHARRINGTONINE [Concomitant]
     Active Substance: OMACETAXINE MEPESUCCINATE
     Indication: ACUTE MYELOID LEUKAEMIA
     Dosage: FOR 3 DAYS 1 MG/M2,  IN 1 DAY
     Route: 065
  4. HOMOHARRINGTONINE [Concomitant]
     Active Substance: OMACETAXINE MEPESUCCINATE
     Indication: MYELODYSPLASTIC SYNDROME TRANSFORMATION
  5. ARA-C [Suspect]
     Active Substance: CYTARABINE
     Indication: MYELODYSPLASTIC SYNDROME TRANSFORMATION
     Dosage: 15 MG/M2, 1 IN 12 HOUR
     Route: 065
  6. G-CSF [Suspect]
     Active Substance: GRANULOCYTE COLONY-STIMULATING FACTOR NOS
     Indication: MYELODYSPLASTIC SYNDROME TRANSFORMATION
     Dosage: 300 UG,  IN 1 DAY
     Route: 065
  7. DECITABINE. [Suspect]
     Active Substance: DECITABINE
     Indication: ACUTE MYELOID LEUKAEMIA
  8. DECITABINE. [Suspect]
     Active Substance: DECITABINE
     Indication: MYELODYSPLASTIC SYNDROME TRANSFORMATION
     Dosage: ,  IN 1 DAY
     Route: 065

REACTIONS (8)
  - Leukopenia [Unknown]
  - Neutropenia [Unknown]
  - Cardiac failure [Unknown]
  - Lung infection [Unknown]
  - Nausea [Unknown]
  - Vomiting [Unknown]
  - Liver disorder [Unknown]
  - Thrombocytopenia [Unknown]
